FAERS Safety Report 23799525 (Version 1)
Quarter: 2024Q2

REPORT INFORMATION
  Report Type: Spontaneous
  Country: US (occurrence: None)
  Receive Date: 20240428
  Receipt Date: 20240428
  Transmission Date: 20240715
  Serious: No
  Sender: FDA-Public Use
  Company Number: None

PATIENT
  Age: 37 Year
  Sex: Female
  Weight: 76.5 kg

DRUGS (3)
  1. AUGMENTIN [Suspect]
     Active Substance: AMOXICILLIN\CLAVULANATE POTASSIUM
     Indication: Tooth abscess
  2. ADDERALL [Concomitant]
  3. ESCITALOPRAM [Concomitant]
     Active Substance: ESCITALOPRAM OXALATE

REACTIONS (1)
  - Diarrhoea [None]

NARRATIVE: CASE EVENT DATE: 20240427
